FAERS Safety Report 11719594 (Version 1)
Quarter: 2015Q4

REPORT INFORMATION
  Report Type: Report from Study
  Country: AT (occurrence: None)
  Receive Date: 20151110
  Receipt Date: 20151110
  Transmission Date: 20160304
  Serious: Yes (Other)
  Sender: FDA-Public Use
  Company Number: AT-MDT-ADR-2015-02109

PATIENT
  Age: 33 Year
  Sex: Male

DRUGS (2)
  1. BACLOFEN INTRATHECAL [Suspect]
     Active Substance: BACLOFEN
     Indication: MUSCLE SPASTICITY
  2. OCRELIZUMAB INTRAVENOUS [Suspect]
     Active Substance: OCRELIZUMAB
     Indication: PRIMARY PROGRESSIVE MULTIPLE SCLEROSIS
     Dosage: 300 MG, QD

REACTIONS (8)
  - Anaesthetic complication [None]
  - Dyspnoea [None]
  - Wound [None]
  - Drug intolerance [None]
  - Paraplegia [None]
  - Fall [None]
  - No therapeutic response [None]
  - Bladder dysfunction [None]
